FAERS Safety Report 9332783 (Version 3)
Quarter: 2013Q3

REPORT INFORMATION
  Report Type: Report from Study
  Country: DE (occurrence: TR)
  Receive Date: 20130606
  Receipt Date: 20130723
  Transmission Date: 20140515
  Serious: Yes (Death, Hospitalization, Other)
  Sender: FDA-Public Use
  Company Number: DE-ACTELION-A-US2013-84122

PATIENT
  Age: 15 Year
  Sex: Male
  Weight: 65 kg

DRUGS (4)
  1. VENTAVIS [Suspect]
     Indication: PULMONARY HYPERTENSION
     Dosage: 8X1
     Route: 055
     Dates: start: 20070402
  2. VENTAVIS [Suspect]
     Dosage: UNK, 5 X/ DAY
     Route: 055
     Dates: end: 20130706
  3. TRACLEER [Concomitant]
     Indication: PULMONARY ARTERIAL HYPERTENSION
     Route: 048
  4. ASIST [Concomitant]

REACTIONS (5)
  - Cardiac failure [Fatal]
  - Gingival cyst [Unknown]
  - Infection [Unknown]
  - Myocardial infarction [Unknown]
  - Off label use [Unknown]
